FAERS Safety Report 9795605 (Version 1)
Quarter: 2014Q1

REPORT INFORMATION
  Report Type: Spontaneous
  Country: US (occurrence: US)
  Receive Date: 20140103
  Receipt Date: 20140103
  Transmission Date: 20141002
  Serious: Yes (Hospitalization)
  Sender: FDA-Public Use
  Company Number: US-BAYER-2014-000796

PATIENT
  Age: 33 Year
  Sex: Female
  Weight: 99.77 kg

DRUGS (7)
  1. YAZ [Suspect]
  2. YASMIN [Suspect]
  3. CYCLOBENZAPRINE [Concomitant]
     Dosage: 10 MG, UNK
  4. HYDROCODONE W/APAP [Concomitant]
     Dosage: 5/500
  5. SINGULAIR [Concomitant]
     Dosage: 10 MG, DAILY PRN
     Route: 048
  6. ALBUTEROL [Concomitant]
     Dosage: 90 MCG EVERY DAY
  7. PEPCID [Concomitant]
     Dosage: UNK, EVERY DAY
     Route: 048

REACTIONS (1)
  - Pulmonary embolism [None]
